FAERS Safety Report 7694400-4 (Version None)
Quarter: 2011Q3

REPORT INFORMATION
  Report Type: 
  Country: None (occurrence: None)
  Receive Date: 20110816
  Receipt Date: 20110803
  Transmission Date: 20111222
  Serious: Yes (Death, Hospitalization)
  Sender: FDA-Public Use
  Company Number: 2009-02201

PATIENT
  Age: 54 Year
  Sex: Male

DRUGS (3)
  1. AMLODIPINE [Concomitant]
  2. VELCADE [Suspect]
     Indication: MULTIPLE MYELOMA
  3. ZOMETA [Concomitant]

REACTIONS (5)
  - LOBAR PNEUMONIA [None]
  - PNEUMONIA [None]
  - HYPERKALAEMIA [None]
  - ARRHYTHMIA [None]
  - PHARYNGITIS [None]
